FAERS Safety Report 17610223 (Version 1)
Quarter: 2020Q1

REPORT INFORMATION
  Report Type: Spontaneous
  Country: US (occurrence: US)
  Receive Date: 20200330
  Receipt Date: 20200330
  Transmission Date: 20200409
  Serious: Yes (Hospitalization)
  Sender: FDA-Public Use
  Company Number: None

PATIENT
  Age: 66 Year
  Sex: Male

DRUGS (1)
  1. PEMBROLIZUMAB (PEMBROLIZUMAB 50MG/VIL INJ) [Suspect]
     Active Substance: PEMBROLIZUMAB
     Indication: SQUAMOUS CELL CARCINOMA OF LUNG
     Dosage: ?          OTHER STRENGTH:50MG/VIL;?
     Route: 042
     Dates: start: 20191219, end: 20191219

REACTIONS (3)
  - Dyspnoea [None]
  - Pneumonitis [None]
  - Productive cough [None]

NARRATIVE: CASE EVENT DATE: 20200205
